FAERS Safety Report 5449720-0 (Version None)
Quarter: 2007Q3

REPORT INFORMATION
  Report Type: 
  Country: None (occurrence: None)
  Receive Date: 20070910
  Receipt Date: 20070828
  Transmission Date: 20080115
  Serious: Yes (Hospitalization)
  Sender: FDA-Public Use
  Company Number: 2005P1000380

PATIENT
  Age: 72 Year
  Sex: Male
  Weight: 82 kg

DRUGS (9)
  1. PLACEBO (PLACEBO) [Suspect]
     Indication: ACUTE MYOCARDIAL INFARCTION
     Dosage: 5 IU, BID; IV, 0.25 MG/KG,X1; IV
     Route: 042
     Dates: start: 20041227, end: 20041227
  2. PLACEBO (PLACEBO) [Suspect]
     Indication: ACUTE MYOCARDIAL INFARCTION
     Dosage: 5 IU, BID; IV, 0.25 MG/KG,X1; IV
     Route: 042
     Dates: start: 20041227, end: 20041227
  3. ABCIXIMAB (ABCIXIMAB) [Suspect]
     Indication: ACUTE MYOCARDIAL INFARCTION
     Dosage: 10.3 MG;X1; IV, 204 MG;X1; IV
     Route: 042
     Dates: start: 20041227
  4. ABCIXIMAB (ABCIXIMAB) [Suspect]
     Indication: ACUTE MYOCARDIAL INFARCTION
     Dosage: 10.3 MG;X1; IV, 204 MG;X1; IV
     Route: 042
     Dates: start: 20041227
  5. ASPIRIN [Concomitant]
  6. CLOPIDOGREL [Concomitant]
  7. SIMVASTATIN [Concomitant]
  8. BETAXOLOL [Concomitant]
  9. CILAZAPRIL [Concomitant]

REACTIONS (5)
  - BLOOD CULTURE POSITIVE [None]
  - ESCHERICHIA INFECTION [None]
  - RED BLOOD CELLS URINE [None]
  - UROSEPSIS [None]
  - WHITE BLOOD CELLS URINE POSITIVE [None]
